FAERS Safety Report 9931518 (Version 1)
Quarter: 2014Q1

REPORT INFORMATION
  Report Type: Spontaneous
  Country: CH (occurrence: None)
  Receive Date: 20140224
  Receipt Date: 20140224
  Transmission Date: 20141002
  Serious: Yes (Other)
  Sender: FDA-Public Use
  Company Number: 20140065

PATIENT
  Age: 42 Year
  Sex: Female

DRUGS (3)
  1. VENOFER [Suspect]
     Indication: IRON DEFICIENCY ANAEMIA
     Route: 042
  2. ACENOCOUMAROL [Concomitant]
  3. CALCIUM CARBASALATE [Concomitant]

REACTIONS (1)
  - Hypophosphataemia [None]
